FAERS Safety Report 17564914 (Version 1)
Quarter: 2020Q1

REPORT INFORMATION
  Report Type: Spontaneous
  Country: FR (occurrence: FR)
  Receive Date: 20200320
  Receipt Date: 20200320
  Transmission Date: 20200409
  Serious: Yes (Hospitalization)
  Sender: FDA-Public Use
  Company Number: FR-ACCORD-176471

PATIENT
  Age: 67 Year
  Sex: Male
  Weight: 70.5 kg

DRUGS (7)
  1. LYRICA [Suspect]
     Active Substance: PREGABALIN
     Indication: PRODUCT USED FOR UNKNOWN INDICATION
     Dosage: STRENGTH: 300 MG
     Route: 048
     Dates: start: 20200227, end: 20200227
  2. CANDESARTAN. [Suspect]
     Active Substance: CANDESARTAN
     Indication: HYPERTENSION
     Route: 048
     Dates: start: 20200227, end: 20200227
  3. METFORMIN [Suspect]
     Active Substance: METFORMIN HYDROCHLORIDE
     Indication: TYPE 2 DIABETES MELLITUS
     Route: 048
     Dates: start: 20200227, end: 20200227
  4. LEVETIRACETAM. [Suspect]
     Active Substance: LEVETIRACETAM
     Indication: PRODUCT USED FOR UNKNOWN INDICATION
     Route: 048
     Dates: start: 20200227, end: 20200227
  5. PAROXETINE. [Suspect]
     Active Substance: PAROXETINE
     Indication: PRODUCT USED FOR UNKNOWN INDICATION
     Route: 048
     Dates: start: 20200227, end: 20200227
  6. BACLOFEN. [Suspect]
     Active Substance: BACLOFEN
     Indication: PRODUCT USED FOR UNKNOWN INDICATION
     Route: 048
     Dates: start: 20200227, end: 20200227
  7. ZAMUDOL L.P [Suspect]
     Active Substance: TRAMADOL HYDROCHLORIDE
     Indication: INTERVERTEBRAL DISCITIS
     Dosage: STRENGHT: 100 MG
     Route: 048
     Dates: start: 20200227, end: 20200227

REACTIONS (4)
  - Product administration error [Unknown]
  - Euphoric mood [Recovered/Resolved]
  - Somnolence [Recovered/Resolved]
  - Respiratory acidosis [Recovered/Resolved]

NARRATIVE: CASE EVENT DATE: 20200227
